APPROVED DRUG PRODUCT: FYREMADEL
Active Ingredient: GANIRELIX ACETATE
Strength: 250MCG/0.5ML
Dosage Form/Route: INJECTABLE;INJECTION
Application: A204246 | Product #001 | TE Code: AP
Applicant: SUN PHARMACEUTICAL INDUSTRIES LTD
Approved: Nov 30, 2018 | RLD: No | RS: No | Type: RX